FAERS Safety Report 12432235 (Version 1)
Quarter: 2016Q2

REPORT INFORMATION
  Report Type: Report from Study
  Country: US (occurrence: US)
  Receive Date: 20160603
  Receipt Date: 20160603
  Transmission Date: 20160815
  Serious: Yes (Other)
  Sender: FDA-Public Use
  Company Number: PHEH2016US013186

PATIENT

DRUGS (1)
  1. COSENTYX [Suspect]
     Active Substance: SECUKINUMAB
     Indication: PSORIASIS
     Dosage: 300 MG, QW
     Route: 058
     Dates: start: 20160405

REACTIONS (10)
  - Skin infection [Recovering/Resolving]
  - Skin irritation [Unknown]
  - Herpes dermatitis [Unknown]
  - Streptococcal infection [Unknown]
  - Scratch [Unknown]
  - Impaired healing [Unknown]
  - Bacterial infection [Unknown]
  - Erythema [Unknown]
  - Escherichia infection [Unknown]
  - Urticaria [Unknown]
